FAERS Safety Report 4457645-2 (Version None)
Quarter: 2004Q3

REPORT INFORMATION
  Report Type: 
  Country: None (occurrence: None)
  Receive Date: 20040922
  Receipt Date: 20040914
  Transmission Date: 20050211
  Serious: Yes (Hospitalization)
  Sender: FDA-Public Use
  Company Number: 234632K04USA

PATIENT
  Sex: Female

DRUGS (1)
  1. REBIF [Suspect]
     Indication: MULTIPLE SCLEROSIS
     Dosage: 44 MCG, 3 IN 1 WEEKS,
     Dates: start: 20030618

REACTIONS (5)
  - DEEP VEIN THROMBOSIS [None]
  - FEELING HOT [None]
  - MUSCLE CRAMP [None]
  - OEDEMA PERIPHERAL [None]
  - PAIN [None]
